FAERS Safety Report 13364040 (Version 1)
Quarter: 2017Q1

REPORT INFORMATION
  Report Type: Spontaneous
  Country: US (occurrence: US)
  Receive Date: 20170322
  Receipt Date: 20170322
  Transmission Date: 20170429
  Serious: Yes (Hospitalization)
  Sender: FDA-Public Use
  Company Number: None

PATIENT
  Age: 56 Year
  Sex: Female
  Weight: 62.65 kg

DRUGS (1)
  1. LONSURF [Suspect]
     Active Substance: TIPIRACIL HYDROCHLORIDE\TRIFLURIDINE
     Indication: COLON NEOPLASM
     Dosage: 20 6 TAB DAY 1-5, 10-15 PO
     Route: 048
     Dates: start: 20160706

REACTIONS (3)
  - Haemoglobin decreased [None]
  - Platelet count decreased [None]
  - Immunodeficiency [None]
